FAERS Safety Report 6697974-5 (Version None)
Quarter: 2010Q2

REPORT INFORMATION
  Report Type: 
  Country: None (occurrence: None)
  Receive Date: 20100427
  Receipt Date: 20100412
  Transmission Date: 20101027
  Serious: No
  Sender: FDA-Public Use
  Company Number: 2009BI037223

PATIENT
  Age: 37 Year
  Sex: Female
  Weight: 86 kg

DRUGS (5)
  1. TYSABRI [Suspect]
     Indication: MULTIPLE SCLEROSIS
     Route: 042
     Dates: start: 20070504, end: 20090801
  2. BACLOFEN [Concomitant]
  3. DITROPAN [Concomitant]
     Dates: start: 20090402
  4. AMANTADINE HCL [Concomitant]
     Dates: start: 20090402
  5. ORTHO EVRA [Concomitant]
     Route: 062
     Dates: start: 20050831

REACTIONS (1)
  - SECONDARY PROGRESSIVE MULTIPLE SCLEROSIS [None]
